FAERS Safety Report 8472515-0 (Version None)
Quarter: 2012Q2

REPORT INFORMATION
  Report Type: 
  Country: None (occurrence: None)
  Receive Date: 20120627
  Receipt Date: 20111205
  Transmission Date: 20120825
  Serious: No
  Sender: FDA-Public Use
  Company Number: US-AMGEN-USASP2011064476

PATIENT
  Age: 60 Year
  Sex: Male

DRUGS (4)
  1. INTERFERON [Concomitant]
     Indication: HEPATITIS C
     Dosage: UNK MG, UNK
     Dates: start: 20101201
  2. RIBAVIRIN [Concomitant]
     Indication: HEPATITIS C
     Dosage: 200 MG, UNK
     Dates: start: 20101201
  3. TELAPREVIR [Concomitant]
     Indication: HEPATITIS C
     Dosage: 750 MG, UNK
     Dates: start: 20101201
  4. PROCRIT [Suspect]
     Indication: ANAEMIA
     Dosage: 1 ML, UNK
     Route: 058
     Dates: start: 20110101

REACTIONS (1)
  - DRUG DOSE OMISSION [None]
